FAERS Safety Report 9296321 (Version 1)
Quarter: 2013Q2

REPORT INFORMATION
  Report Type: Spontaneous
  Country: BR (occurrence: BR)
  Receive Date: 20130517
  Receipt Date: 20130517
  Transmission Date: 20140414
  Serious: Yes (Hospitalization, Other)
  Sender: FDA-Public Use
  Company Number: BR-ASTRAZENECA-2013SE33465

PATIENT
  Age: 61 Year
  Sex: Male
  Weight: 102 kg

DRUGS (3)
  1. ATACAND [Suspect]
     Indication: HYPERTENSION
     Route: 048
  2. ATACAND [Suspect]
     Indication: HYPERTENSION
     Route: 048
  3. CRESTOR [Suspect]
     Indication: BLOOD CHOLESTEROL ABNORMAL
     Route: 048

REACTIONS (4)
  - Coronary artery occlusion [Recovered/Resolved]
  - Hypertension [Recovered/Resolved]
  - Off label use [Recovered/Resolved]
  - Drug ineffective [Unknown]
